FAERS Safety Report 4609351-9 (Version None)
Quarter: 2005Q1

REPORT INFORMATION
  Report Type: 
  Country: None (occurrence: None)
  Receive Date: 20050314
  Receipt Date: 20050222
  Transmission Date: 20050727
  Serious: Yes (Other)
  Sender: FDA-Public Use
  Company Number: 2005024893

PATIENT
  Age: 70 Year
  Sex: Female

DRUGS (2)
  1. NIFEDIPINE [Suspect]
     Indication: ILL-DEFINED DISORDER
     Dosage: SEE IMAGE
     Route: 048
     Dates: end: 20050111
  2. NIFEDIPINE [Suspect]
     Indication: ILL-DEFINED DISORDER
     Dosage: SEE IMAGE
     Route: 048
     Dates: start: 20050112, end: 20050124

REACTIONS (1)
  - PLATELET COUNT DECREASED [None]
